FAERS Safety Report 9332032 (Version 1)
Quarter: 2013Q2

REPORT INFORMATION
  Report Type: Spontaneous
  Country: DE (occurrence: None)
  Receive Date: 20130603
  Receipt Date: 20130603
  Transmission Date: 20140414
  Serious: Yes (Hospitalization, Other)
  Sender: FDA-Public Use
  Company Number: AUR-APL-2013-04444

PATIENT
  Age: 15 Year
  Sex: Male

DRUGS (1)
  1. OLANZAPINE (OLANZAPINE) [Suspect]
     Indication: PRODUCT USED FOR UNKNOWN INDICATION

REACTIONS (9)
  - Agitation [None]
  - Dystonia [None]
  - Coma scale abnormal [None]
  - Miosis [None]
  - Sinus tachycardia [None]
  - Electrocardiogram ST segment depression [None]
  - Electrocardiogram T wave peaked [None]
  - Self-medication [None]
  - Overdose [None]
